FAERS Safety Report 17407710 (Version 2)
Quarter: 2020Q1

REPORT INFORMATION
  Report Type: Spontaneous
  Country: DE (occurrence: DE)
  Receive Date: 20200212
  Receipt Date: 20200226
  Transmission Date: 20200409
  Serious: Yes (Life-Threatening, Hospitalization, Other)
  Sender: FDA-Public Use
  Company Number: NVSC2020DE037226

PATIENT
  Age: 34 Year
  Sex: Male

DRUGS (24)
  1. PROMETHAZINE [Suspect]
     Active Substance: PROMETHAZINE HYDROCHLORIDE
     Dosage: UNK, COMBINATION OF UNKNOWN DOSE OF CHLORPROTHIXENE (TRUXAL?) AND PROMETHAZINE (ATOSIL
     Route: 065
     Dates: start: 19731027
  2. PROMETHAZINE [Suspect]
     Active Substance: PROMETHAZINE HYDROCHLORIDE
     Dosage: 150 MG, QD
     Route: 065
  3. PROMETHAZINE [Suspect]
     Active Substance: PROMETHAZINE HYDROCHLORIDE
     Dosage: UNK,INDIVIDUAL DOSE 1X
     Route: 065
     Dates: start: 19731011
  4. MOGADAN [Concomitant]
     Indication: SLEEP DISORDER
     Dosage: UNK
     Route: 065
  5. LIMBITRYL [Concomitant]
     Active Substance: AMITRIPTYLINE HYDROCHLORIDE\CHLORDIAZEPOXIDE HYDROCHLORIDE
     Indication: OBSESSIVE-COMPULSIVE DISORDER
     Dosage: UNK
     Route: 065
  6. PROMETHAZINE [Suspect]
     Active Substance: PROMETHAZINE HYDROCHLORIDE
     Dosage: UNK,INDIVIDUAL DOSE 1X
     Route: 065
     Dates: start: 19730918
  7. LUMINALE [Concomitant]
     Active Substance: PHENOBARBITAL
     Indication: SLEEP DISORDER
     Dosage: UNK
     Route: 065
  8. TAVOR [Concomitant]
     Indication: OBSESSIVE-COMPULSIVE DISORDER
     Dosage: UNK
     Route: 065
  9. PROMETHAZINE [Suspect]
     Active Substance: PROMETHAZINE HYDROCHLORIDE
     Dosage: UNK, REDUCED AGAIN
     Route: 065
     Dates: start: 19731114
  10. TRUXAL [Concomitant]
     Active Substance: CHLORPROTHIXENE
     Dosage: UNK,INDIVIDUAL DOSE, 1X
     Route: 065
     Dates: start: 19730918
  11. TRUXAL [Concomitant]
     Active Substance: CHLORPROTHIXENE
     Dosage: UNK,INDIVIDUAL DOSE, 1X
     Route: 065
     Dates: start: 19731011
  12. HALOPERIDOL. [Concomitant]
     Active Substance: HALOPERIDOL
     Indication: OBSESSIVE-COMPULSIVE DISORDER
     Dosage: UNK
     Route: 065
  13. PERSEDON [Concomitant]
     Indication: SLEEP DISORDER
     Dosage: UNK
     Route: 065
  14. PROMETHAZINE [Suspect]
     Active Substance: PROMETHAZINE HYDROCHLORIDE
     Indication: OBSESSIVE-COMPULSIVE DISORDER
     Dosage: 8.725 G
     Route: 065
  15. PSYQUIL [Concomitant]
     Active Substance: TRIFLUPROMAZINE HYDROCHLORIDE
     Indication: OBSESSIVE-COMPULSIVE DISORDER
     Dosage: UNK
     Route: 065
  16. DECENTAN [Concomitant]
     Active Substance: PERPHENAZINE
     Indication: OBSESSIVE-COMPULSIVE DISORDER
     Dosage: UNK
     Route: 065
  17. PROMETHAZINE [Suspect]
     Active Substance: PROMETHAZINE HYDROCHLORIDE
     Dosage: 400 MG, QD
     Route: 065
  18. PROMETHAZINE [Suspect]
     Active Substance: PROMETHAZINE HYDROCHLORIDE
     Dosage: UNK
     Route: 065
     Dates: start: 19731027
  19. TRUXAL [Concomitant]
     Active Substance: CHLORPROTHIXENE
     Dosage: UNK,INDIVIDUAL DOSE, 1X
     Route: 065
     Dates: start: 19730926
  20. VALIUM [Concomitant]
     Active Substance: DIAZEPAM
     Indication: OBSESSIVE-COMPULSIVE DISORDER
     Dosage: UNK
     Route: 065
  21. PROMETHAZINE [Suspect]
     Active Substance: PROMETHAZINE HYDROCHLORIDE
     Dosage: UNK, INDIVIDUAL DOSE 1X
     Route: 065
     Dates: start: 19730926
  22. TRUXAL [Concomitant]
     Active Substance: CHLORPROTHIXENE
     Indication: OBSESSIVE-COMPULSIVE DISORDER
     Dosage: UNK, CONTINOUS PRESCRIPTION
     Route: 065
     Dates: start: 19731027
  23. MELLARIL [Concomitant]
     Active Substance: THIORIDAZINE HYDROCHLORIDE
     Indication: OBSESSIVE-COMPULSIVE DISORDER
     Dosage: UNK
     Route: 065
  24. SOMNIFEN [Concomitant]
     Indication: SLEEP DISORDER
     Dosage: UNK
     Route: 065

REACTIONS (14)
  - Staphylococcal infection [Recovered/Resolved]
  - Laryngitis [Recovered/Resolved]
  - Oropharyngeal pain [Recovered/Resolved]
  - Pyrexia [Recovered/Resolved]
  - Agranulocytosis [Recovered/Resolved]
  - Off label use [Unknown]
  - Sepsis [Recovered/Resolved]
  - Mouth ulceration [Recovered/Resolved]
  - Pharyngitis [Recovered/Resolved]
  - Dysphagia [Recovered/Resolved]
  - Leukaemoid reaction [Recovered/Resolved]
  - Leukopenia [Recovered/Resolved]
  - Klebsiella infection [Recovered/Resolved]
  - Tonsillitis [Recovered/Resolved]

NARRATIVE: CASE EVENT DATE: 19731122
